FAERS Safety Report 8228615-3 (Version None)
Quarter: 2012Q1

REPORT INFORMATION
  Report Type: 
  Country: None (occurrence: None)
  Receive Date: 20120322
  Receipt Date: 20110304
  Transmission Date: 20120608
  Serious: No
  Sender: FDA-Public Use
  Company Number: US-BRISTOL-MYERS SQUIBB COMPANY-15589690

PATIENT
  Age: 20 Year
  Sex: Male
  Weight: 81 kg

DRUGS (1)
  1. ERBITUX [Suspect]
     Indication: NEOPLASM
     Dosage: FIRST TREATMENT (7TH OF FEBRUARY)
     Dates: start: 20110207

REACTIONS (1)
  - DERMATITIS ACNEIFORM [None]
